FAERS Safety Report 13263680 (Version 1)
Quarter: 2017Q1

REPORT INFORMATION
  Report Type: Spontaneous
  Country: US (occurrence: US)
  Receive Date: 20170222
  Receipt Date: 20170222
  Transmission Date: 20170428
  Serious: No
  Sender: FDA-Public Use
  Company Number: None

PATIENT
  Age: 31 Year
  Sex: Female
  Weight: 90 kg

DRUGS (3)
  1. PHENYLEPHRINE [Concomitant]
     Active Substance: PHENYLEPHRINE\PHENYLEPHRINE HYDROCHLORIDE
  2. PROMETHAZINE-CODEINE [Concomitant]
     Active Substance: CODEINE PHOSPHATE\PROMETHAZINE
  3. TAMIFLU [Suspect]
     Active Substance: OSELTAMIVIR PHOSPHATE
     Indication: INFLUENZA
     Dosage: ?          QUANTITY:1 CAPSULE(S);?
     Route: 048
     Dates: start: 20170215, end: 20170220

REACTIONS (2)
  - Nausea [None]
  - Headache [None]

NARRATIVE: CASE EVENT DATE: 20170216
